FAERS Safety Report 8486335-4 (Version None)
Quarter: 2012Q3

REPORT INFORMATION
  Report Type: 
  Country: None (occurrence: None)
  Receive Date: 20120703
  Receipt Date: 20120523
  Transmission Date: 20120928
  Serious: Yes (Death)
  Sender: FDA-Public Use
  Company Number: US-GLAXOSMITHKLINE-A0978781A

PATIENT
  Sex: Male

DRUGS (4)
  1. LOPRESSOR [Concomitant]
  2. NEXIUM [Concomitant]
  3. PRADAXA [Concomitant]
  4. TYKERB [Suspect]
     Indication: PRODUCT USED FOR UNKNOWN INDICATION
     Dosage: 250MG PER DAY
     Route: 048

REACTIONS (2)
  - DEATH [None]
  - OEDEMA PERIPHERAL [None]
